FAERS Safety Report 4970157-2 (Version None)
Quarter: 2006Q2

REPORT INFORMATION
  Report Type: 
  Country: None (occurrence: None)
  Receive Date: 20060406
  Receipt Date: 20060327
  Transmission Date: 20061013
  Serious: Yes (Other)
  Sender: FDA-Public Use
  Company Number: 2006042325

PATIENT
  Sex: Female
  Weight: 88.905 kg

DRUGS (7)
  1. LIPITOR [Suspect]
     Indication: BLOOD CHOLESTEROL INCREASED
     Dosage: 40 MG (40 MG, 1 IN 1 D), ORAL
     Route: 048
  2. ACTOS [Suspect]
     Indication: BLOOD GLUCOSE
     Dates: start: 20060224
  3. DIOVAN [Concomitant]
  4. ASPIRIN [Concomitant]
  5. SYNTHROID [Concomitant]
  6. ACTOS [Concomitant]
  7. AMARYL [Concomitant]

REACTIONS (9)
  - ASTHENIA [None]
  - BLINDNESS UNILATERAL [None]
  - BLOOD GLUCOSE FLUCTUATION [None]
  - CATARACT [None]
  - CONDITION AGGRAVATED [None]
  - DIABETES MELLITUS [None]
  - DIZZINESS [None]
  - MUSCLE SPASMS [None]
  - TREMOR [None]
